FAERS Safety Report 13419257 (Version 5)
Quarter: 2017Q3

REPORT INFORMATION
  Report Type: Report from Study
  Country: US (occurrence: US)
  Receive Date: 20170407
  Receipt Date: 20170703
  Transmission Date: 20171127
  Serious: Yes (Hospitalization)
  Sender: FDA-Public Use
  Company Number: PHEH2017US010033

PATIENT
  Age: 77 Year
  Sex: Male
  Weight: 228 kg

DRUGS (3)
  1. EXELON PATCH [Suspect]
     Active Substance: RIVASTIGMINE
     Indication: DEMENTIA
  2. EXELON PATCH [Suspect]
     Active Substance: RIVASTIGMINE
     Indication: PARKINSON^S DISEASE
     Dosage: 13.3 MG, QD PATCH 15 (CM2)
     Route: 062
     Dates: start: 201608
  3. CITALOPRAM [Concomitant]
     Active Substance: CITALOPRAM HYDROBROMIDE
     Indication: DEPRESSION
     Dosage: 40 MG, UNK
     Route: 048

REACTIONS (1)
  - Localised infection [Recovered/Resolved]

NARRATIVE: CASE EVENT DATE: 201703
